FAERS Safety Report 9778023 (Version 1)
Quarter: 2013Q4

REPORT INFORMATION
  Report Type: Spontaneous
  Country: US (occurrence: US)
  Receive Date: 20131223
  Receipt Date: 20131223
  Transmission Date: 20140711
  Serious: No
  Sender: FDA-Public Use
  Company Number: US-US-EMD SERONO, INC.-7257113

PATIENT
  Sex: 0

DRUGS (1)
  1. REBIF [Suspect]
     Indication: MULTIPLE SCLEROSIS RELAPSE

REACTIONS (1)
  - Anxiety [Not Recovered/Not Resolved]
